FAERS Safety Report 5738415-1 (Version None)
Quarter: 2008Q2

REPORT INFORMATION
  Report Type: 
  Country: None (occurrence: None)
  Receive Date: 20080514
  Receipt Date: 20080514
  Transmission Date: 20081010
  Serious: Yes (Congenital Anomaly, Other)
  Sender: FDA-Public Use
  Company Number: GB-ABBOTT-07P-167-0374434-00

PATIENT
  Sex: Female
  Weight: 3.9 kg

DRUGS (1)
  1. VALPROIC ACID [Suspect]
     Indication: DRUG EXPOSURE DURING PREGNANCY
     Route: 064

REACTIONS (38)
  - ABNORMAL BEHAVIOUR [None]
  - AGGRESSION [None]
  - ANKYLOGLOSSIA CONGENITAL [None]
  - ANTISOCIAL BEHAVIOUR [None]
  - ASTHMA [None]
  - ASTIGMATISM [None]
  - ATTENTION DEFICIT/HYPERACTIVITY DISORDER [None]
  - CONGENITAL NAIL DISORDER [None]
  - CONGENITAL NOSE MALFORMATION [None]
  - CONVULSION [None]
  - COORDINATION ABNORMAL [None]
  - COUGH [None]
  - CRANIOSYNOSTOSIS [None]
  - DEVELOPMENTAL DELAY [None]
  - DIARRHOEA [None]
  - DISINHIBITION [None]
  - DISTURBANCE IN ATTENTION [None]
  - DRUG EXPOSURE DURING PREGNANCY [None]
  - EPILEPSY [None]
  - EXPRESSIVE LANGUAGE DISORDER [None]
  - FOETAL ANTICONVULSANT SYNDROME [None]
  - FOOT DEFORMITY [None]
  - GASTROOESOPHAGEAL REFLUX DISEASE [None]
  - GRAND MAL CONVULSION [None]
  - GRUNTING [None]
  - HYPERACUSIS [None]
  - INSOMNIA [None]
  - LEARNING DISABILITY [None]
  - OTITIS MEDIA [None]
  - PULMONARY ARTERY STENOSIS [None]
  - READING DISORDER [None]
  - RESPIRATORY DISTRESS [None]
  - SKULL MALFORMATION [None]
  - SLEEP DISORDER [None]
  - SPEECH DISORDER [None]
  - SPEECH DISORDER DEVELOPMENTAL [None]
  - STRABISMUS [None]
  - UNEVALUABLE EVENT [None]
